FAERS Safety Report 15954809 (Version 1)
Quarter: 2019Q1

REPORT INFORMATION
  Report Type: Spontaneous
  Country: FR (occurrence: FR)
  Receive Date: 20190213
  Receipt Date: 20190213
  Transmission Date: 20190417
  Serious: Yes (Hospitalization, Other)
  Sender: FDA-Public Use
  Company Number: FR-AUROBINDO-AUR-APL-2019-007175

PATIENT

DRUGS (1)
  1. CODEINE+PARACETAMOL [Suspect]
     Active Substance: ACETAMINOPHEN\CODEINE PHOSPHATE
     Indication: HEADACHE
     Dosage: UNK
     Route: 065

REACTIONS (9)
  - Paranasal sinus discomfort [Unknown]
  - Dizziness [Unknown]
  - Balance disorder [Unknown]
  - Ocular discomfort [Unknown]
  - Pain [Unknown]
  - Hunger [Unknown]
  - Ear discomfort [Unknown]
  - Visual impairment [Unknown]
  - Sensory processing disorder [Unknown]
